FAERS Safety Report 8455124-9 (Version None)
Quarter: 2012Q2

REPORT INFORMATION
  Report Type: 
  Country: None (occurrence: None)
  Receive Date: 20120614
  Receipt Date: 20120614
  Transmission Date: 20120825
  Serious: Yes (Other)
  Sender: FDA-Public Use
  Company Number: None

PATIENT
  Sex: Female

DRUGS (1)
  1. POLYETHYLENE GLYCOL 3350 [Suspect]
     Indication: LAXATIVE SUPPORTIVE CARE
     Dosage: ONCE, OTHER
     Route: 050

REACTIONS (2)
  - PYREXIA [None]
  - CHILLS [None]
